FAERS Safety Report 12557232 (Version 1)
Quarter: 2016Q3

REPORT INFORMATION
  Report Type: Spontaneous
  Country: FR (occurrence: FR)
  Receive Date: 20160714
  Receipt Date: 20160714
  Transmission Date: 20161109
  Serious: Yes (Hospitalization)
  Sender: FDA-Public Use
  Company Number: FR-SA-2016SA124892

PATIENT
  Age: 78 Year
  Sex: Male
  Weight: 56 kg

DRUGS (26)
  1. FLAGYL [Suspect]
     Active Substance: METRONIDAZOLE\METRONIDAZOLE HYDROCHLORIDE
     Route: 048
     Dates: start: 20160122, end: 20160527
  2. CALCIDOSE [Concomitant]
     Active Substance: CALCIUM CARBONATE
     Dosage: 1 SACHET
  3. FUMAFER [Concomitant]
     Active Substance: FERROUS FUMARATE
  4. ARAVA [Suspect]
     Active Substance: LEFLUNOMIDE
     Route: 065
     Dates: end: 20160525
  5. CEFOTAXIME [Suspect]
     Active Substance: CEFOTAXIME SODIUM
     Route: 042
     Dates: start: 20160523, end: 20160530
  6. CITALOPRAM [Concomitant]
     Active Substance: CITALOPRAM HYDROBROMIDE
  7. BISOCE [Concomitant]
     Active Substance: BISOPROLOL
     Dates: start: 20160104
  8. TRIATEC [Concomitant]
     Active Substance: RAMIPRIL
     Dates: start: 20160104
  9. LEVOFOLINATE DE CALCIUM ZENTIVA [Suspect]
     Active Substance: LEVOLEUCOVORIN CALCIUM
     Dosage: (400MG/M2 = 600 MG- GENERIC ZENTIVA).
     Route: 065
     Dates: start: 20160429, end: 20160429
  10. FLUOROURACIL. [Suspect]
     Active Substance: FLUOROURACIL
     Dosage: 4500 MG IN THE 2ND CURE
     Route: 042
     Dates: start: 20160512, end: 20160513
  11. LASILIX [Concomitant]
     Active Substance: FUROSEMIDE
  12. INEXIUM [Concomitant]
     Active Substance: ESOMEPRAZOLE
  13. RED BLOOD CELLS [Concomitant]
     Active Substance: HUMAN RED BLOOD CELL
     Dosage: DOSE:2 UNIT(S)
     Dates: start: 20160526, end: 20160526
  14. CEFOTAXIME [Suspect]
     Active Substance: CEFOTAXIME SODIUM
     Route: 042
     Dates: start: 20160122
  15. ARANESP [Concomitant]
     Active Substance: DARBEPOETIN ALFA
  16. INNOHEP [Concomitant]
     Active Substance: TINZAPARIN SODIUM
     Route: 058
  17. VITAMIN K [Concomitant]
     Active Substance: PHYTONADIONE
     Route: 042
  18. LEVOFOLINATE DE CALCIUM ZENTIVA [Suspect]
     Active Substance: LEVOLEUCOVORIN CALCIUM
     Dosage: 400 MG/M2 = 600 MG- GENERIC ZENTIVA)
     Route: 065
     Dates: start: 20160512, end: 20160512
  19. ARAVA [Suspect]
     Active Substance: LEFLUNOMIDE
     Route: 065
     Dates: start: 200201
  20. FLUOROURACIL. [Suspect]
     Active Substance: FLUOROURACIL
     Dosage: 4500 MG IN THE 2ND CURE
     Route: 042
     Dates: start: 20160429, end: 20160430
  21. STILNOX [Concomitant]
     Active Substance: ZOLPIDEM TARTRATE
  22. TAZOCILLINE [Concomitant]
     Active Substance: PIPERACILLIN SODIUM\TAZOBACTAM SODIUM
  23. CORTANCYL [Concomitant]
     Active Substance: PREDNISONE
  24. FOLIC ACID. [Concomitant]
     Active Substance: FOLIC ACID
  25. ZAMUDOL [Concomitant]
     Active Substance: TRAMADOL HYDROCHLORIDE
     Dosage: 100LP
  26. CALCIPARINE [Concomitant]
     Active Substance: HEPARIN CALCIUM
     Route: 058

REACTIONS (3)
  - Pruritus [Recovered/Resolved]
  - Eosinophilia [Recovered/Resolved]
  - Drug eruption [Recovered/Resolved]

NARRATIVE: CASE EVENT DATE: 20160526
